FAERS Safety Report 4957625-4 (Version None)
Quarter: 2006Q1

REPORT INFORMATION
  Report Type: 
  Country: None (occurrence: None)
  Receive Date: 20060330
  Receipt Date: 20060320
  Transmission Date: 20060701
  Serious: Yes (Other)
  Sender: FDA-Public Use
  Company Number: GB-SANOFI-SYNTHELABO-F01200600809

PATIENT
  Sex: Male

DRUGS (4)
  1. OXALIPLATIN [Suspect]
     Indication: COLON CANCER
     Route: 042
  2. CAPECITABINE [Suspect]
     Dosage: 1000 MG TWICE DAILY FOR 2 WEEKS, Q3W
     Route: 048
  3. BEVACIZUMAB [Suspect]
     Route: 042
  4. OMEPRAZOLE [Concomitant]
     Dates: start: 20051215

REACTIONS (2)
  - BLOOD LACTATE DEHYDROGENASE INCREASED [None]
  - CHEST PAIN [None]
